FAERS Safety Report 9069570 (Version 1)
Quarter: 2013Q1

REPORT INFORMATION
  Report Type: Spontaneous
  Country: US (occurrence: US)
  Receive Date: 20130215
  Receipt Date: 20130215
  Transmission Date: 20140127
  Serious: Yes (Other)
  Sender: FDA-Public Use
  Company Number: US-SHIRE-ALL1-2013-00868

PATIENT
  Age: 13 Year
  Sex: Male

DRUGS (5)
  1. INTUNIV [Suspect]
     Indication: ATTENTION DEFICIT/HYPERACTIVITY DISORDER
     Dosage: UNK UNK (UNKNOWN AMOUNT OF 2 MG TABLETS), ONE DOSE
     Route: 048
     Dates: start: 20130211, end: 20130211
  2. INTUNIV [Suspect]
     Dosage: 1 MG, 1X/DAY:QD
     Route: 048
     Dates: start: 20130130
  3. INTUNIV [Suspect]
     Dosage: 2 MG, 1X/DAY:QD
     Route: 048
     Dates: start: 201302, end: 20130211
  4. ADVIL /00109201/ [Suspect]
     Indication: PRODUCT USED FOR UNKNOWN INDICATION
     Dosage: UNK UNK, ONE DOSE
     Route: 065
     Dates: start: 20130211, end: 20130211
  5. CONCERTA [Concomitant]
     Indication: ATTENTION DEFICIT/HYPERACTIVITY DISORDER
     Dosage: 18 MG, 1X/DAY:QD
     Route: 048

REACTIONS (1)
  - Suicide attempt [Recovered/Resolved]
